FAERS Safety Report 4874081-5 (Version None)
Quarter: 2006Q1

REPORT INFORMATION
  Report Type: 
  Country: None (occurrence: None)
  Receive Date: 20060104
  Receipt Date: 20051226
  Transmission Date: 20060701
  Serious: Yes (Hospitalization)
  Sender: FDA-Public Use
  Company Number: 2005173080

PATIENT
  Age: 41 Year
  Sex: Male
  Weight: 97.977 kg

DRUGS (2)
  1. SUDAFED COLD + SINUS           (PARACETAMOL, PSEUDOEPHEDRINE) [Suspect]
     Indication: SINUS HEADACHE
     Dosage: 1 GELCAP ONCE, ORAL
     Route: 048
     Dates: start: 20051217, end: 20051217
  2. SUDAFED COLD + SINUS (PARACETAMOL, PSEUDOEPHEDRINE) [Suspect]

REACTIONS (1)
  - CONVULSION [None]
